FAERS Safety Report 16403101 (Version 1)
Quarter: 2019Q2

REPORT INFORMATION
  Report Type: Spontaneous
  Country: IT (occurrence: IT)
  Receive Date: 20190607
  Receipt Date: 20190607
  Transmission Date: 20190711
  Serious: Yes (Other)
  Sender: FDA-Public Use
  Company Number: PHHY2019IT128783

PATIENT
  Age: 72 Year
  Sex: Female

DRUGS (6)
  1. PACLITAXEL. [Suspect]
     Active Substance: PACLITAXEL
     Indication: BREAST CANCER
     Dosage: 100 MG, CYCLIC
     Route: 042
     Dates: start: 20190314
  2. HERCEPTIN [Suspect]
     Active Substance: TRASTUZUMAB
     Indication: BREAST CANCER
     Dosage: 350 MG, CYCLIC
     Route: 042
     Dates: start: 20190314
  3. PERJETA [Suspect]
     Active Substance: PERTUZUMAB
     Indication: BREAST CANCER
     Dosage: 420 MG, CYCLIC
     Route: 042
     Dates: start: 20190314
  4. HERCEPTIN [Suspect]
     Active Substance: TRASTUZUMAB
     Dosage: 350 MG, CYCLIC
     Route: 042
     Dates: start: 20190529
  5. PACLITAXEL. [Suspect]
     Active Substance: PACLITAXEL
     Dosage: 100 MG, CYCLIC
     Route: 042
     Dates: start: 20190529
  6. PERJETA [Suspect]
     Active Substance: PERTUZUMAB
     Dosage: 420 MG, CYCLIC
     Route: 042
     Dates: start: 20190529

REACTIONS (3)
  - Fungal infection [Not Recovered/Not Resolved]
  - Diarrhoea [Not Recovered/Not Resolved]
  - Decreased appetite [Not Recovered/Not Resolved]

NARRATIVE: CASE EVENT DATE: 20190529
